FAERS Safety Report 9232639 (Version 1)
Quarter: 2013Q2

REPORT INFORMATION
  Report Type: Spontaneous
  Country: US (occurrence: US)
  Receive Date: 20130416
  Receipt Date: 20130416
  Transmission Date: 20140414
  Serious: Yes (Hospitalization)
  Sender: FDA-Public Use
  Company Number: US-009507513-1304USA006559

PATIENT
  Age: 59 Year
  Sex: Female

DRUGS (1)
  1. CLARINEX [Suspect]
     Indication: PNEUMONIA
     Dosage: UNK
     Route: 048
     Dates: start: 198704

REACTIONS (1)
  - Pneumonia [Recovered/Resolved]
